FAERS Safety Report 7910223-2 (Version None)
Quarter: 2011Q4

REPORT INFORMATION
  Report Type: 
  Country: None (occurrence: None)
  Receive Date: 20111111
  Receipt Date: 20111027
  Transmission Date: 20120403
  Serious: Yes (Life-Threatening, Hospitalization)
  Sender: FDA-Public Use
  Company Number: DE-ROCHE-788007

PATIENT
  Sex: Female
  Weight: 158 kg

DRUGS (4)
  1. L-THYROX [Concomitant]
     Indication: THYROIDECTOMY
     Dosage: DOSE: 24 MG LEVOTHROSINE
     Route: 048
     Dates: start: 20050101, end: 20110728
  2. DOCETAXEL [Suspect]
     Indication: BREAST CANCER
     Dosage: DSOE FORM :UNSPECIFIED. RECENT DOSE: 30 JUN 2011
     Route: 042
  3. BISOPROLOL [Concomitant]
     Indication: HYPERTENSION
     Route: 048
  4. XELODA [Suspect]
     Indication: BREAST CANCER
     Dosage: DOSE: 825 MG/M2, TWICE PER DAY, FROM DAYS 1 TO 14.
     Route: 048
     Dates: start: 20110609, end: 20110704

REACTIONS (7)
  - FEBRILE NEUTROPENIA [None]
  - ENTEROBACTER INFECTION [None]
  - RENAL FAILURE [None]
  - ATRIAL FIBRILLATION [None]
  - ENTEROCOLITIS INFECTIOUS [None]
  - TACHYCARDIA [None]
  - PANCREATIC ATROPHY [None]
